FAERS Safety Report 9574629 (Version 1)
Quarter: 2013Q4

REPORT INFORMATION
  Report Type: Spontaneous
  Country: DE (occurrence: DE)
  Receive Date: 20131001
  Receipt Date: 20131001
  Transmission Date: 20140711
  Serious: Yes (Other)
  Sender: FDA-Public Use
  Company Number: DE-PFIZER INC-2013277624

PATIENT
  Age: 53 Year
  Sex: Female

DRUGS (1)
  1. DOSTINEX [Suspect]
     Dosage: FOR ^YEARS^

REACTIONS (2)
  - Endocardial disease [Unknown]
  - Cardiomyopathy [Unknown]
